FAERS Safety Report 18894430 (Version 1)
Quarter: 2021Q1

REPORT INFORMATION
  Report Type: Report from Study
  Country: US (occurrence: US)
  Receive Date: 20210215
  Receipt Date: 20210215
  Transmission Date: 20210420
  Serious: Yes (Other)
  Sender: FDA-Public Use
  Company Number: NVSC2020US291329

PATIENT
  Age: 8 Year
  Sex: Male

DRUGS (3)
  1. KYMRIAH [Suspect]
     Active Substance: TISAGENLECLEUCEL
     Indication: ACUTE LYMPHOCYTIC LEUKAEMIA RECURRENT
     Dosage: 1 DF, ONCE/SINGLE (2500000),
     Route: 041
     Dates: start: 20191217, end: 20191217
  2. FLUDARABINE [Concomitant]
     Active Substance: FLUDARABINE PHOSPHATE
     Indication: CHEMOTHERAPY
     Dosage: UNK
     Route: 065
  3. CYCLOPHOSPHAMIDE. [Concomitant]
     Active Substance: CYCLOPHOSPHAMIDE
     Indication: CHEMOTHERAPY
     Dosage: UNK
     Route: 065

REACTIONS (9)
  - Hypogammaglobulinaemia [Unknown]
  - Haemoglobin decreased [Unknown]
  - B-cell aplasia [Unknown]
  - Lymphocyte count decreased [Unknown]
  - Neutrophil count decreased [Recovered/Resolved]
  - B-lymphocyte count abnormal [Not Recovered/Not Resolved]
  - Haematocrit decreased [Unknown]
  - White blood cell count decreased [Unknown]
  - Platelet count decreased [Recovered/Resolved]

NARRATIVE: CASE EVENT DATE: 202003
